FAERS Safety Report 7311765-3 (Version None)
Quarter: 2011Q1

REPORT INFORMATION
  Report Type: 
  Country: None (occurrence: None)
  Receive Date: 20110224
  Receipt Date: 20110208
  Transmission Date: 20110831
  Serious: Yes (Other)
  Sender: FDA-Public Use
  Company Number: US-BAYER-2011-017180

PATIENT
  Sex: Female
  Weight: 75 kg

DRUGS (5)
  1. PAXIL [Concomitant]
     Indication: ANXIETY
     Dosage: UNK
     Dates: start: 20020101, end: 20080101
  2. YASMIN [Suspect]
     Indication: PREMENSTRUAL SYNDROME
     Dosage: UNK
     Dates: start: 20020101, end: 20041213
  3. MULTI-VITAMIN [Concomitant]
  4. ZANTAC [Concomitant]
  5. YASMIN [Suspect]
     Indication: MENORRHAGIA

REACTIONS (8)
  - ISCHAEMIC CEREBRAL INFARCTION [None]
  - MENTAL IMPAIRMENT [None]
  - CONFUSIONAL STATE [None]
  - SPEECH DISORDER [None]
  - STRESS [None]
  - HEARING IMPAIRED [None]
  - DIZZINESS [None]
  - PAIN [None]
